FAERS Safety Report 5276518-9 (Version None)
Quarter: 2007Q1

REPORT INFORMATION
  Report Type: 
  Country: None (occurrence: None)
  Receive Date: 20061213
  Receipt Date: 20040303
  Transmission Date: 20070707
  Serious: Yes (Hospitalization, Disabling)
  Sender: FDA-Public Use
  Company Number: 2003UW15181

PATIENT
  Age: 27 Year
  Sex: Male
  Weight: 81.6475 kg

DRUGS (5)
  1. SEROQUEL [Suspect]
     Indication: PSYCHOTIC DISORDER
     Dosage: 600 MG QD PO
     Route: 048
     Dates: start: 20030715, end: 20030826
  2. SEROQUEL [Suspect]
     Indication: PSYCHOTIC DISORDER
     Dosage: 600 - 700 MG DAILY
     Dates: start: 20030916
  3. LEXAPRO [Concomitant]
  4. TRANXENE [Concomitant]
  5. DEPAKOTE [Concomitant]

REACTIONS (1)
  - PRIAPISM [None]
